FAERS Safety Report 9571295 (Version 4)
Quarter: 2014Q2

REPORT INFORMATION
  Report Type: Spontaneous
  Country: US (occurrence: US)
  Receive Date: 20131001
  Receipt Date: 20140508
  Transmission Date: 20141212
  Serious: Yes (Hospitalization, Other)
  Sender: FDA-Public Use
  Company Number: US-009507513-1205USA04334

PATIENT
  Sex: Female

DRUGS (6)
  1. FOSAMAX [Suspect]
     Indication: OSTEOPOROSIS
     Dosage: 70 MG, WEEKLY
     Route: 048
     Dates: start: 20030809, end: 20080324
  2. FOSAMAX [Suspect]
     Indication: OSTEOPOROSIS
     Route: 048
     Dates: start: 200308, end: 201102
  3. ALENDRONATE SODIUM [Suspect]
     Indication: OSTEOPOROSIS
     Dosage: 70 MG, UNK
     Route: 048
     Dates: start: 20080324, end: 20110522
  4. MONTELUKAST [Concomitant]
     Indication: ASTHMA
     Dosage: UNK
     Dates: start: 1962
  5. ADVAIR [Concomitant]
     Indication: ASTHMA
     Dosage: UNK
     Dates: start: 1962
  6. OMEPRAZOLE [Concomitant]
     Dosage: UNK
     Dates: start: 2010

REACTIONS (26)
  - Intramedullary rod insertion [Unknown]
  - Packed red blood cell transfusion [Unknown]
  - Hypersensitivity [Unknown]
  - Femur fracture [Unknown]
  - Osteopenia [Unknown]
  - Foot deformity [Unknown]
  - Gastroenteritis [Unknown]
  - Aortic calcification [Unknown]
  - Phlebolith [Unknown]
  - Injection site granuloma [Unknown]
  - Rotator cuff syndrome [Unknown]
  - Bursitis [Unknown]
  - Tendonitis [Unknown]
  - Muscle strain [Unknown]
  - Intervertebral disc protrusion [Unknown]
  - Vertebral foraminal stenosis [Unknown]
  - Hypokalaemia [Unknown]
  - Hypertension [Unknown]
  - Foot fracture [Unknown]
  - Emphysema [Unknown]
  - Diabetes mellitus [Unknown]
  - Vitamin D deficiency [Unknown]
  - Oral disorder [Unknown]
  - Gastric disorder [Unknown]
  - Pain in extremity [Unknown]
  - Gastrooesophageal reflux disease [Unknown]
